FAERS Safety Report 5068641-9 (Version None)
Quarter: 2006Q3

REPORT INFORMATION
  Report Type: 
  Country: None (occurrence: None)
  Receive Date: 20060802
  Receipt Date: 20060123
  Transmission Date: 20061208
  Serious: Yes (Other)
  Sender: FDA-Public Use
  Company Number: US-BRISTOL-MYERS SQUIBB COMPANY-13256433

PATIENT
  Age: 77 Year
  Sex: Female
  Weight: 53 kg

DRUGS (9)
  1. COUMADIN [Suspect]
     Indication: ATRIAL FIBRILLATION
     Route: 048
     Dates: start: 20060101, end: 20060101
  2. NEXIUM [Concomitant]
     Dates: start: 20060101, end: 20060101
  3. ACETAMINOPHEN [Concomitant]
     Dates: end: 20060101
  4. DIOVAN [Concomitant]
     Dosage: DOSE = 160/12.5 MG
  5. NORVASC [Concomitant]
     Dosage: DURATION OF THERAPY = ^FOR YEARS^
  6. ATENOLOL [Concomitant]
     Dosage: DURATION OF THERAPY = ^FOR YEARS^
  7. NEURONTIN [Concomitant]
     Dosage: DURATION OF THERAPY = ^COUPLE YEARS^
  8. SENNA [Concomitant]
  9. AMOXICILLIN [Concomitant]
     Indication: INFECTION PROPHYLAXIS
     Dates: start: 20060120

REACTIONS (3)
  - DYSPNOEA [None]
  - EPISTAXIS [None]
  - PROTHROMBIN TIME RATIO INCREASED [None]
